FAERS Safety Report 6694053-8 (Version None)
Quarter: 2010Q2

REPORT INFORMATION
  Report Type: 
  Country: None (occurrence: None)
  Receive Date: 20100423
  Receipt Date: 20100413
  Transmission Date: 20101027
  Serious: Yes (Hospitalization)
  Sender: FDA-Public Use
  Company Number: US-JNJCH-2009031690

PATIENT
  Age: 13 Month
  Weight: 8.5 kg

DRUGS (1)
  1. ASPIRIN [Suspect]
     Indication: UPPER RESPIRATORY TRACT INFECTION
     Dosage: TEXT:0.07 GM/KG FOR ONE DAY
     Route: 048

REACTIONS (12)
  - ACIDOSIS [None]
  - CONVULSION [None]
  - CYANOSIS [None]
  - DEHYDRATION [None]
  - HYPERVENTILATION [None]
  - IRRITABILITY [None]
  - STUPOR [None]
  - THERAPEUTIC AGENT TOXICITY [None]
  - URINE KETONE BODY PRESENT [None]
  - VOMITING [None]
  - WHITE BLOOD CELL COUNT INCREASED [None]
  - WRONG DRUG ADMINISTERED [None]
